FAERS Safety Report 6549829-4 (Version None)
Quarter: 2010Q1

REPORT INFORMATION
  Report Type: 
  Country: None (occurrence: None)
  Receive Date: 20100125
  Receipt Date: 20100113
  Transmission Date: 20100710
  Serious: Yes (Other)
  Sender: FDA-Public Use
  Company Number: NL-TYCO HEALTHCARE/MALLINCKRODT-T201000082

PATIENT
  Age: 73 Year
  Sex: Male

DRUGS (1)
  1. SODIUM IODIDE I 131 [Suspect]

REACTIONS (3)
  - HYPERTHYROIDISM [None]
  - RADIATION THYROIDITIS [None]
  - STRESS CARDIOMYOPATHY [None]
